FAERS Safety Report 4292372-6 (Version None)
Quarter: 2004Q1

REPORT INFORMATION
  Report Type: 
  Country: None (occurrence: None)
  Receive Date: 20040126
  Receipt Date: 20031007
  Transmission Date: 20041129
  Serious: No
  Sender: FDA-Public Use
  Company Number: USA030843048

PATIENT
  Age: 87 Year
  Sex: Female
  Weight: 45 kg

DRUGS (8)
  1. FORTEO [Suspect]
     Indication: OSTEOPOROSIS
     Dates: start: 20030724
  2. PLAVIX [Concomitant]
  3. AGGRENOX [Concomitant]
  4. DYAZIDE [Concomitant]
  5. QUININE [Concomitant]
  6. VITAMIN E [Concomitant]
  7. CALCIUM [Concomitant]
  8. TYLENOL [Concomitant]

REACTIONS (7)
  - ANAL DISCOMFORT [None]
  - CONSTIPATION [None]
  - DYSPNOEA EXACERBATED [None]
  - FAECES DISCOLOURED [None]
  - INJECTION SITE HAEMORRHAGE [None]
  - INJECTION SITE PAIN [None]
  - INJECTION SITE SCAR [None]
